FAERS Safety Report 12856542 (Version 1)
Quarter: 2016Q4

REPORT INFORMATION
  Report Type: Spontaneous
  Country: US (occurrence: US)
  Receive Date: 20161018
  Receipt Date: 20161018
  Transmission Date: 20170207
  Serious: Yes (Other)
  Sender: FDA-Public Use
  Company Number: PHEH2016US026155

PATIENT
  Age: 52 Year
  Sex: Female
  Weight: 74.38 kg

DRUGS (1)
  1. COSENTYX [Suspect]
     Active Substance: SECUKINUMAB
     Indication: PSORIASIS
     Dosage: 300 MG, QMO
     Route: 058
     Dates: start: 20160421

REACTIONS (5)
  - Throat irritation [Unknown]
  - Dyspnoea [Unknown]
  - Cough [Unknown]
  - Dry throat [Unknown]
  - Vertigo [Unknown]

NARRATIVE: CASE EVENT DATE: 20160901
